FAERS Safety Report 9528990 (Version 1)
Quarter: 2013Q3

REPORT INFORMATION
  Report Type: Spontaneous
  Country: US (occurrence: US)
  Receive Date: 20130917
  Receipt Date: 20130917
  Transmission Date: 20140515
  Serious: No
  Sender: FDA-Public Use
  Company Number: US-PFIZER INC-2013264342

PATIENT
  Sex: Male

DRUGS (2)
  1. ADVIL [Suspect]
     Indication: SCIATICA
     Dosage: 2 TABLETS, UNK
  2. VOLTAREN EMULGEL [Interacting]
     Dosage: UNK

REACTIONS (2)
  - Drug interaction [Unknown]
  - Blood pressure increased [Unknown]
